FAERS Safety Report 17800948 (Version 2)
Quarter: 2020Q2

REPORT INFORMATION
  Report Type: Report from Study
  Country: FR (occurrence: FR)
  Receive Date: 20200518
  Receipt Date: 20200611
  Transmission Date: 20200714
  Serious: Yes (Death, Hospitalization, Other)
  Sender: FDA-Public Use
  Company Number: FR-EXELIXIS-XL18419026642

PATIENT
  Age: 57 Year
  Sex: Male
  Weight: 60 kg

DRUGS (1)
  1. CABOZANTINIB [Suspect]
     Active Substance: CABOZANTINIB
     Indication: RENAL CELL CARCINOMA
     Dosage: 60 MG, QD
     Route: 048
     Dates: start: 20191120, end: 20200107

REACTIONS (5)
  - General physical health deterioration [Not Recovered/Not Resolved]
  - Palmar-plantar erythrodysaesthesia syndrome [Not Recovered/Not Resolved]
  - Erythema [Not Recovered/Not Resolved]
  - Death [Fatal]
  - Oedema [Recovering/Resolving]

NARRATIVE: CASE EVENT DATE: 201912
